FAERS Safety Report 6366531-2 (Version None)
Quarter: 2009Q3

REPORT INFORMATION
  Report Type: 
  Country: None (occurrence: None)
  Receive Date: 20090921
  Receipt Date: 20090910
  Transmission Date: 20100115
  Serious: Yes (Hospitalization)
  Sender: FDA-Public Use
  Company Number: JP-ASTRAZENECA-2009SE12501

PATIENT
  Sex: Female

DRUGS (7)
  1. BLOPRESS [Suspect]
     Indication: HYPERTENSION
     Route: 048
     Dates: start: 20090814, end: 20090816
  2. BLOPRESS [Suspect]
     Route: 048
     Dates: start: 20090817, end: 20090903
  3. BISOLVON [Concomitant]
     Route: 048
     Dates: start: 20090814, end: 20090820
  4. BISOLVON [Concomitant]
     Route: 048
     Dates: start: 20090828, end: 20090831
  5. LOXONIN [Concomitant]
     Route: 048
     Dates: start: 20090814, end: 20090820
  6. COLDRIN [Concomitant]
     Route: 048
     Dates: start: 20090814, end: 20090820
  7. COLDRIN [Concomitant]
     Route: 048
     Dates: start: 20090828, end: 20090831

REACTIONS (1)
  - DRUG ERUPTION [None]
